FAERS Safety Report 13300029 (Version 1)
Quarter: 2017Q1

REPORT INFORMATION
  Report Type: Spontaneous
  Country: US (occurrence: US)
  Receive Date: 20170306
  Receipt Date: 20170306
  Transmission Date: 20170428
  Serious: Yes (Other)
  Sender: FDA-Public Use
  Company Number: US-AMGEN-USASP2017034529

PATIENT
  Sex: Male
  Weight: 1.11 kg

DRUGS (6)
  1. EPOGEN [Suspect]
     Active Substance: ERYTHROPOIETIN
     Indication: INTESTINAL VILLI ATROPHY
     Dosage: 4400 MU/ML, UNK
     Route: 050
  2. POTASSIUM CHLORIDE. [Suspect]
     Active Substance: POTASSIUM CHLORIDE
     Indication: INTESTINAL VILLI ATROPHY
     Dosage: 4 MEQ/L, UNK
     Route: 050
  3. SODIUM CHLORIDE. [Suspect]
     Active Substance: SODIUM CHLORIDE
     Indication: INTESTINAL VILLI ATROPHY
     Dosage: 115 MEQ/L, UNK
     Route: 050
  4. HUMAN SERUM ALBUMIN [Suspect]
     Active Substance: ALBUMIN HUMAN
     Indication: INTESTINAL VILLI ATROPHY
     Route: 050
  5. NEUPOGEN [Suspect]
     Active Substance: FILGRASTIM
     Indication: INTESTINAL VILLI ATROPHY
     Dosage: 225 NG/ML, UNK
     Route: 050
  6. SODIUM ACETATE. [Suspect]
     Active Substance: SODIUM ACETATE
     Indication: INTESTINAL VILLI ATROPHY
     Dosage: 17 MEQ/L, UNK
     Route: 050

REACTIONS (1)
  - Necrotising colitis [Unknown]
